FAERS Safety Report 11036842 (Version 1)
Quarter: 2015Q2

REPORT INFORMATION
  Report Type: Spontaneous
  Country: US (occurrence: None)
  Receive Date: 20150415
  Receipt Date: 20150415
  Transmission Date: 20150821
  Serious: Yes (Death, Hospitalization)
  Sender: FDA-Public Use
  Company Number: None

PATIENT
  Age: 2 Year
  Sex: Female
  Weight: 15.8 kg

DRUGS (3)
  1. DEXAMETHASONE. [Suspect]
     Active Substance: DEXAMETHASONE
     Dates: end: 20150320
  2. VINCRISTINE SULFATE. [Suspect]
     Active Substance: VINCRISTINE SULFATE
     Dates: end: 20150408
  3. ONCASPAR [Suspect]
     Active Substance: PEGASPARGASE
     Dates: end: 20150404

REACTIONS (11)
  - Neutropenic colitis [None]
  - Pallor [None]
  - Generalised tonic-clonic seizure [None]
  - Dysphagia [None]
  - Sepsis [None]
  - Dehydration [None]
  - Blood creatinine increased [None]
  - Pulseless electrical activity [None]
  - Pain [None]
  - Hypotension [None]
  - Vomiting [None]

NARRATIVE: CASE EVENT DATE: 20150411
